FAERS Safety Report 5418206-1 (Version None)
Quarter: 2007Q3

REPORT INFORMATION
  Report Type: 
  Country: None (occurrence: None)
  Receive Date: 20070817
  Receipt Date: 20070810
  Transmission Date: 20080115
  Serious: Yes (Hospitalization, Other)
  Sender: FDA-Public Use
  Company Number: PHEH2006US06682

PATIENT
  Age: 57 Year
  Sex: Female
  Weight: 123.36 kg

DRUGS (15)
  1. ESTRADERM [Suspect]
     Indication: MENOPAUSAL SYMPTOMS
     Dosage: 0.05 MG, UNK
     Route: 062
     Dates: start: 19980101
  2. PREMARIN [Suspect]
     Indication: MENOPAUSAL SYMPTOMS
     Route: 048
     Dates: start: 19960101
  3. CENESTIN [Suspect]
     Indication: MENOPAUSAL SYMPTOMS
     Dosage: 1.25 MG, UNK
     Route: 048
     Dates: start: 20010425, end: 20030401
  4. NORTRIPTYLINE HCL [Concomitant]
     Dosage: 10 MG, UNK
  5. FUROSEMIDE [Concomitant]
     Dosage: 40 MG, UNK
     Route: 048
  6. CLONIDINE [Concomitant]
     Dosage: 0.1 MG, UNK
     Route: 048
  7. GLYBURIDE [Concomitant]
     Dosage: 6 MG, UNK
  8. AVANDIA [Concomitant]
     Dosage: 4 MG, UNK
     Route: 048
  9. METOPROLOL SUCCINATE [Concomitant]
     Dosage: 100 MG, UNK
     Route: 048
  10. ACCUPRIL [Concomitant]
     Dosage: 40 MG, UNK
     Route: 048
  11. XENICAL [Concomitant]
     Dosage: 120 MG, UNK
     Route: 048
  12. PENTOXIFYLLINE [Concomitant]
     Dosage: 400 MG, UNK
     Route: 048
  13. GLUCOPHAGE [Concomitant]
     Dosage: 500 MG, UNK
     Route: 048
  14. LIPITOR [Concomitant]
     Dosage: 10 MG, UNK
     Route: 048
  15. CARDURA                                 /IRE/ [Concomitant]
     Dosage: 4 MG, UNK
     Route: 048

REACTIONS (16)
  - BIOPSY BREAST ABNORMAL [None]
  - BREAST CANCER [None]
  - BREAST CANCER METASTATIC [None]
  - BREAST CYST EXCISION [None]
  - CERVICAL DYSPLASIA [None]
  - EMOTIONAL DISTRESS [None]
  - HYPERTENSION [None]
  - INFLAMMATION [None]
  - LOBAR PNEUMONIA [None]
  - MAMMOGRAM ABNORMAL [None]
  - METASTASES TO LYMPH NODES [None]
  - MODIFIED RADICAL MASTECTOMY [None]
  - PAPILLOMA VIRAL INFECTION [None]
  - SMEAR CERVIX ABNORMAL [None]
  - SPINAL OSTEOARTHRITIS [None]
  - THROMBOSIS [None]
